FAERS Safety Report 8587898 (Version 4)
Quarter: 2018Q4

REPORT INFORMATION
  Report Type: Spontaneous
  Country: FR (occurrence: FR)
  Receive Date: 20120531
  Receipt Date: 20181112
  Transmission Date: 20190205
  Serious: Yes (Hospitalization, Other)
  Sender: FDA-Public Use
  Company Number: FR-PFIZER INC-2012128985

PATIENT
  Age: 53 Year
  Sex: Male
  Weight: 95 kg

DRUGS (11)
  1. PANOS [Concomitant]
     Active Substance: TETRAZEPAM
     Dosage: UNK
     Dates: start: 20120216
  2. PERINDOPRIL [Concomitant]
     Active Substance: PERINDOPRIL
     Indication: CARDIAC DISORDER
     Dosage: UNK
     Dates: start: 2011
  3. PREVISCAN (FLUINDIONE) [Concomitant]
     Active Substance: FLUINDIONE
     Indication: CARDIAC DISORDER
     Dosage: UNK
     Dates: start: 2011
  4. CORDARONE [Suspect]
     Active Substance: AMIODARONE HYDROCHLORIDE
     Indication: CARDIAC DISORDER
     Dosage: UNK
     Route: 048
     Dates: start: 2011
  5. SOPROL (BISOPROLOL FUMARATE) [Suspect]
     Active Substance: BISOPROLOL FUMARATE
     Indication: CARDIAC DISORDER
     Dosage: UNK
     Route: 048
     Dates: start: 2011
  6. PARACETAMOL [Concomitant]
     Active Substance: ACETAMINOPHEN
     Dosage: UNK
     Dates: start: 20120216
  7. LASILIX [Suspect]
     Active Substance: FUROSEMIDE
     Indication: CARDIAC DISORDER
     Dosage: UNK
     Route: 065
     Dates: start: 2011
  8. TAHOR [Concomitant]
     Active Substance: ATORVASTATIN CALCIUM
     Indication: CARDIAC DISORDER
     Dosage: UNK
     Dates: start: 2011
  9. KALEORID [Concomitant]
     Active Substance: POTASSIUM CHLORIDE
     Indication: CARDIAC DISORDER
     Dosage: UNK
     Dates: start: 2011
  10. ORELOX [Concomitant]
     Active Substance: CEFPODOXIME
     Dosage: UNK
     Dates: start: 20120216
  11. BIOCALYPTOL [Concomitant]
     Dosage: UNK
     Dates: start: 20120216

REACTIONS (6)
  - Head injury [Unknown]
  - Acute kidney injury [Unknown]
  - Diarrhoea [Unknown]
  - Syncope [Recovered/Resolved]
  - Fall [Unknown]
  - Arrhythmia [Recovered/Resolved]

NARRATIVE: CASE EVENT DATE: 201202
